FAERS Safety Report 16868712 (Version 1)
Quarter: 2019Q4

REPORT INFORMATION
  Report Type: Spontaneous
  Country: US (occurrence: US)
  Receive Date: 20190930
  Receipt Date: 20190930
  Transmission Date: 20200122
  Serious: Yes (Life-Threatening, Hospitalization)
  Sender: FDA-Public Use
  Company Number: None

PATIENT
  Age: 21 Year
  Sex: Female
  Weight: 66.15 kg

DRUGS (8)
  1. ADDERALL [Suspect]
     Active Substance: AMPHETAMINE ASPARTATE\AMPHETAMINE SULFATE\DEXTROAMPHETAMINE SACCHARATE\DEXTROAMPHETAMINE SULFATE
  2. MG [Concomitant]
     Active Substance: MAGNESIUM
  3. LATUDA [Suspect]
     Active Substance: LURASIDONE HYDROCHLORIDE
     Indication: BIPOLAR DISORDER
     Dosage: ?          QUANTITY:1 TABLET(S);?
     Route: 048
  4. LAMICTAL [Suspect]
     Active Substance: LAMOTRIGINE
     Indication: ANXIETY
     Dosage: ?          QUANTITY:1 TABLET(S);?
     Route: 048
  5. IUD (KYLEENA) [Concomitant]
  6. LAMICTAL [Suspect]
     Active Substance: LAMOTRIGINE
     Indication: BIPOLAR DISORDER
     Dosage: ?          QUANTITY:1 TABLET(S);?
     Route: 048
  7. ALEVE [Concomitant]
     Active Substance: NAPROXEN SODIUM
  8. IRON [Concomitant]
     Active Substance: IRON

REACTIONS (6)
  - Respiratory arrest [None]
  - Fall [None]
  - Confusional state [None]
  - Contusion [None]
  - Vomiting [None]
  - Unresponsive to stimuli [None]

NARRATIVE: CASE EVENT DATE: 20190929
